FAERS Safety Report 16655700 (Version 4)
Quarter: 2019Q3

REPORT INFORMATION
  Report Type: Spontaneous
  Country: FR (occurrence: FR)
  Receive Date: 20190801
  Receipt Date: 20190814
  Transmission Date: 20191004
  Serious: Yes (Other)
  Sender: FDA-Public Use
  Company Number: PHHY2019FR176275

PATIENT
  Age: 32 Year
  Sex: Male

DRUGS (16)
  1. PLERIXAFOR [Concomitant]
     Active Substance: PLERIXAFOR
     Indication: PRODUCT USED FOR UNKNOWN INDICATION
     Dosage: UNK
     Route: 065
  2. CYTARABINE. [Suspect]
     Active Substance: CYTARABINE
     Indication: BONE MARROW CONDITIONING REGIMEN
  3. MICAFUNGIN. [Suspect]
     Active Substance: MICAFUNGIN SODIUM
     Indication: PROPHYLAXIS
     Dosage: UNK
     Route: 065
  4. MELPHALAN. [Suspect]
     Active Substance: MELPHALAN
     Indication: PLASMABLASTIC LYMPHOMA
     Dosage: 140 MG/M2, UNK
     Route: 065
  5. ARACYTINE [Concomitant]
     Active Substance: CYTARABINE
     Indication: PLASMABLASTIC LYMPHOMA
     Dosage: 2 COURSES
     Route: 065
  6. ETOPOSIDE. [Suspect]
     Active Substance: ETOPOSIDE
     Indication: PLASMABLASTIC LYMPHOMA
     Dosage: 100 MG/M2, BID
     Route: 042
  7. VALACICLOVIR [Suspect]
     Active Substance: VALACYCLOVIR HYDROCHLORIDE
     Indication: PROPHYLAXIS
     Dosage: UNK
     Route: 065
  8. GRANULOCYTE COLONY STIMULATING FACTOR [Suspect]
     Active Substance: GRANULOCYTE COLONY-STIMULATING FACTOR NOS
     Indication: NEUTROPENIA
     Dosage: UNK
     Route: 065
  9. BENDAMUSTINE [Suspect]
     Active Substance: BENDAMUSTINE
     Indication: BONE MARROW CONDITIONING REGIMEN
  10. MELPHALAN. [Suspect]
     Active Substance: MELPHALAN
     Indication: BONE MARROW CONDITIONING REGIMEN
  11. BENDAMUSTINE [Suspect]
     Active Substance: BENDAMUSTINE
     Indication: PLASMABLASTIC LYMPHOMA
     Dosage: 160 MG/M2, QD
     Route: 042
  12. PREDNISONE. [Concomitant]
     Active Substance: PREDNISONE
     Indication: PLASMABLASTIC LYMPHOMA
     Dosage: 2 COURSES
     Route: 065
  13. CYTARABINE. [Suspect]
     Active Substance: CYTARABINE
     Indication: PLASMABLASTIC LYMPHOMA
     Dosage: 100 MG/M2, BID
     Route: 042
  14. ETOPOSIDE. [Suspect]
     Active Substance: ETOPOSIDE
     Indication: BONE MARROW CONDITIONING REGIMEN
  15. METHOTREXATE. [Concomitant]
     Active Substance: METHOTREXATE
     Indication: PROPHYLAXIS
     Dosage: 12.5 MG, UNK
     Route: 037
  16. CARBOPLATIN. [Concomitant]
     Active Substance: CARBOPLATIN
     Indication: PLASMABLASTIC LYMPHOMA
     Dosage: 2 COURSES
     Route: 065

REACTIONS (8)
  - Pyrexia [Unknown]
  - Malignant neoplasm progression [Unknown]
  - Stomatitis [Unknown]
  - Inflammation [Unknown]
  - Plasmablastic lymphoma [Unknown]
  - Nausea [Unknown]
  - Systemic inflammatory response syndrome [Unknown]
  - Product use in unapproved indication [Unknown]
